FAERS Safety Report 10302161 (Version 3)
Quarter: 2015Q3

REPORT INFORMATION
  Report Type: Spontaneous
  Country: US (occurrence: US)
  Receive Date: 20140714
  Receipt Date: 20150814
  Transmission Date: 20151125
  Serious: No
  Sender: FDA-Public Use
  Company Number: US-GILEAD-2013-0080324

PATIENT
  Age: 58 Year
  Sex: Female

DRUGS (4)
  1. ADCIRCA [Concomitant]
     Active Substance: TADALAFIL
  2. TYVASO [Concomitant]
     Active Substance: TREPROSTINIL
  3. LETAIRIS [Suspect]
     Active Substance: AMBRISENTAN
     Indication: PULMONARY HYPERTENSION
     Dosage: 10 MG, QD
  4. LETAIRIS [Suspect]
     Active Substance: AMBRISENTAN
     Indication: PATENT DUCTUS ARTERIOSUS
     Dosage: 10 MG, QD
     Dates: start: 20130517

REACTIONS (10)
  - Cough [Unknown]
  - Fatigue [Recovered/Resolved]
  - Dizziness [Unknown]
  - Feeling abnormal [Unknown]
  - Palpitations [Recovered/Resolved]
  - Dyspnoea exertional [Recovered/Resolved]
  - Throat irritation [Unknown]
  - Musculoskeletal pain [Unknown]
  - Headache [Unknown]
  - Flushing [Unknown]
